FAERS Safety Report 9223110 (Version 1)
Quarter: 2013Q2

REPORT INFORMATION
  Report Type: Spontaneous
  Country: MX (occurrence: MX)
  Receive Date: 20130410
  Receipt Date: 20130410
  Transmission Date: 20140414
  Serious: Yes (Hospitalization)
  Sender: FDA-Public Use
  Company Number: PHHY2013MX034805

PATIENT
  Age: 46 Year
  Sex: Female

DRUGS (1)
  1. EXFORGE [Suspect]
     Dosage: UNK160/5 MG, UKN
     Route: 048

REACTIONS (1)
  - Nervous system disorder [Not Recovered/Not Resolved]
